FAERS Safety Report 5378544-8 (Version None)
Quarter: 2007Q3

REPORT INFORMATION
  Report Type: 
  Country: None (occurrence: None)
  Receive Date: 20070702
  Receipt Date: 20060511
  Transmission Date: 20080115
  Serious: Yes (Other)
  Sender: FDA-Public Use
  Company Number: 2006VX001707

PATIENT
  Age: 86 Year
  Sex: Female

DRUGS (11)
  1. EFUDEX [Suspect]
     Dosage: 30 MG; QM
  2. SANDOSTATIN LAR [Suspect]
     Dosage: 30 MG; QM
  3. ALTACE [Concomitant]
  4. FUROSEMIDE [Concomitant]
  5. ELTROXIN [Concomitant]
  6. WARFARIN SODIUM [Concomitant]
  7. ATIVAN [Concomitant]
  8. METOPROLOL SUCCINATE [Concomitant]
  9. PARIET [Concomitant]
  10. GLYBURIDE [Concomitant]
  11. SYNTHROID [Concomitant]

REACTIONS (3)
  - BLOOD GLUCOSE INCREASED [None]
  - DERMATITIS [None]
  - HYPERTENSION [None]
